FAERS Safety Report 5567317-9 (Version None)
Quarter: 2007Q4

REPORT INFORMATION
  Report Type: 
  Country: None (occurrence: None)
  Receive Date: 20071219
  Receipt Date: 20070619
  Transmission Date: 20080405
  Serious: No
  Sender: FDA-Public Use
  Company Number: US-ABBOTT-07P-163-0372280-00

PATIENT
  Sex: Male

DRUGS (4)
  1. DILAUDID [Suspect]
     Indication: BACK PAIN
  2. FENTANYL [Suspect]
     Indication: BACK PAIN
     Dosage: 75 UG/HR
     Route: 062
     Dates: start: 20030101, end: 20030101
  3. FENTANYL [Suspect]
     Dosage: 50 UG/HR
     Route: 062
     Dates: start: 20070502
  4. DIAZEPAM [Concomitant]
     Indication: MUSCLE SPASMS
     Route: 048
     Dates: start: 20000101

REACTIONS (2)
  - PAIN [None]
  - PRURITUS GENERALISED [None]
